FAERS Safety Report 6003730-3 (Version None)
Quarter: 2008Q4

REPORT INFORMATION
  Report Type: 
  Country: None (occurrence: None)
  Receive Date: 20081216
  Receipt Date: 20081017
  Transmission Date: 20090506
  Serious: No
  Sender: FDA-Public Use
  Company Number: US-AMGEN-KDL294391

PATIENT
  Sex: Male

DRUGS (15)
  1. ARANESP [Suspect]
     Indication: ANAEMIA
     Dates: start: 20080707, end: 20080918
  2. ALTACE [Concomitant]
  3. TOPROL-XL [Concomitant]
  4. MIRAPEX [Concomitant]
  5. CLOZAPINE [Concomitant]
  6. MULTI-VITAMINS [Concomitant]
  7. CALCIUM [Concomitant]
  8. IRON [Concomitant]
  9. FOLIC ACID [Concomitant]
  10. VITAMIN B [Concomitant]
  11. ASPIRIN [Concomitant]
  12. TYLENOL (CAPLET) [Concomitant]
  13. TEGRETOL [Concomitant]
  14. ASCORBIC ACID [Concomitant]
  15. VITAMINS [Concomitant]

REACTIONS (3)
  - DRUG INEFFECTIVE [None]
  - HYPOTENSION [None]
  - RASH [None]
